FAERS Safety Report 22359658 (Version 1)
Quarter: 2023Q2

REPORT INFORMATION
  Report Type: Spontaneous
  Country: US (occurrence: None)
  Receive Date: 20230523
  Receipt Date: 20230523
  Transmission Date: 20230721
  Serious: No
  Sender: FDA-Public Use
  Company Number: None

PATIENT
  Age: 6 Year
  Sex: Male
  Weight: 22.95 kg

DRUGS (1)
  1. MIRALAX [Suspect]
     Active Substance: POLYETHYLENE GLYCOL 3350
     Indication: Constipation
     Dosage: OTHER QUANTITY : 1 8.5G;?FREQUENCY : EVERY 4 HOURS;?
     Route: 048
     Dates: start: 20230512, end: 20230515

REACTIONS (5)
  - Aggression [None]
  - Seizure [None]
  - Abnormal behaviour [None]
  - Stereotypy [None]
  - Disturbance in attention [None]

NARRATIVE: CASE EVENT DATE: 20230516
